FAERS Safety Report 8762835 (Version 3)
Quarter: 2012Q4

REPORT INFORMATION
  Report Type: 
  Country: JP (occurrence: JP)
  Receive Date: 20120828
  Receipt Date: 20120918
  Transmission Date: 20130627
  Serious: Yes (Other)
  Sender: FDA-Public Use
  Company Number: JP-PFIZER INC-2012205326

PATIENT
  Age: 82 Year
  Sex: Male

DRUGS (1)
  1. XALATAN [Suspect]
     Indication: GLAUCOMA
     Dosage: one drop once daily
     Route: 047
     Dates: start: 2010, end: 20120821

REACTIONS (1)
  - Benign prostatic hyperplasia [Not Recovered/Not Resolved]
